FAERS Safety Report 14700516 (Version 1)
Quarter: 2018Q1

REPORT INFORMATION
  Report Type: Spontaneous
  Country: US (occurrence: US)
  Receive Date: 20180330
  Receipt Date: 20180330
  Transmission Date: 20180509
  Serious: Yes (Hospitalization)
  Sender: FDA-Public Use
  Company Number: None

PATIENT
  Age: 57 Year
  Sex: Male
  Weight: 88.7 kg

DRUGS (13)
  1. LEUPROLIDE [Suspect]
     Active Substance: LEUPROLIDE
     Indication: PROSTATE CANCER
     Dosage: 22.5 MG Q3 MONTHS INTRAMUSCULAR
     Route: 030
     Dates: start: 20170622
  2. PSEUDOEPHEDRINE [Concomitant]
     Active Substance: PSEUDOEPHEDRINE
  3. SENNA DOCUSATE [Concomitant]
  4. SIMETHICONE (DIMETHICONE) [Concomitant]
     Active Substance: DIMETHICONE
  5. LACTOBACILLUS ACIDOPHILUS [Concomitant]
     Active Substance: LACTOBACILLUS ACIDOPHILUS
  6. MEGESTROL (MEGACE) [Concomitant]
  7. NAPROXEN SODIUM. [Concomitant]
     Active Substance: NAPROXEN SODIUM
  8. PRAMOXINE [Concomitant]
     Active Substance: PRAMOXINE
  9. MESALAMINE (CANASA) [Concomitant]
  10. CALCIUM CARBONATE-VIT D3 [Concomitant]
  11. SUCRALFATE. [Concomitant]
     Active Substance: SUCRALFATE
  12. CYMBALTA [Concomitant]
     Active Substance: DULOXETINE HYDROCHLORIDE
  13. DICYCLOMINE (BENTYL) [Concomitant]

REACTIONS (1)
  - Subarachnoid haemorrhage [None]

NARRATIVE: CASE EVENT DATE: 20180322
